FAERS Safety Report 7472897-2 (Version None)
Quarter: 2011Q1

REPORT INFORMATION
  Report Type: 
  Country: None (occurrence: None)
  Receive Date: 20110302
  Receipt Date: 20101012
  Transmission Date: 20110831
  Serious: Yes (Hospitalization)
  Sender: FDA-Public Use
  Company Number: 163-21880-10101488

PATIENT
  Age: 49 Year
  Sex: Male

DRUGS (2)
  1. REVLIMID [Suspect]
     Indication: LYMPHOMA
     Dosage: 20 MG, 2 IN 1 D, PO; 15 MG, DAILY FOR 21 DAYS ON AND 1 WEEK OFF, PO
     Route: 048
     Dates: start: 20100601
  2. REVLIMID [Suspect]
     Indication: LYMPHOMA
     Dosage: 20 MG, 2 IN 1 D, PO; 15 MG, DAILY FOR 21 DAYS ON AND 1 WEEK OFF, PO
     Route: 048
     Dates: start: 20100505

REACTIONS (1)
  - WRIST FRACTURE [None]
